FAERS Safety Report 4447309-3 (Version None)
Quarter: 2004Q3

REPORT INFORMATION
  Report Type: 
  Country: None (occurrence: None)
  Receive Date: 20040813
  Receipt Date: 20040527
  Transmission Date: 20050211
  Serious: No
  Sender: FDA-Public Use
  Company Number: S04-USA-01718-01

PATIENT
  Age: 90 Year
  Sex: Male

DRUGS (8)
  1. NAMENDA [Suspect]
     Indication: DEMENTIA ALZHEIMER'S TYPE
     Dosage: 15 MG QD PO
     Route: 048
     Dates: start: 20040322, end: 20040328
  2. NAMENDA [Suspect]
     Indication: DEMENTIA ALZHEIMER'S TYPE
     Dosage: 20 MG QD PO
     Route: 048
     Dates: start: 20040329, end: 20040520
  3. NAMENDA [Suspect]
     Indication: DEMENTIA ALZHEIMER'S TYPE
     Dosage: 5 MG QD PO
     Route: 048
     Dates: start: 20040308, end: 20040314
  4. NAMENDA [Suspect]
     Indication: DEMENTIA ALZHEIMER'S TYPE
     Dosage: 10 MG QD PO
     Route: 048
     Dates: start: 20040315, end: 20040321
  5. ARICEPT [Concomitant]
  6. VITAMIN C [Concomitant]
  7. VITAMIN E [Concomitant]
  8. FOLIC ACID [Concomitant]

REACTIONS (4)
  - BLOOD URINE [None]
  - CONFUSIONAL STATE [None]
  - DRY SKIN [None]
  - GAIT DISTURBANCE [None]
